FAERS Safety Report 9124857 (Version 2)
Quarter: 2013Q2

REPORT INFORMATION
  Report Type: Spontaneous
  Country: SG (occurrence: SG)
  Receive Date: 20130117
  Receipt Date: 20130506
  Transmission Date: 20140414
  Serious: Yes (Other)
  Sender: FDA-Public Use
  Company Number: SG-009507513-1301SGP004814

PATIENT
  Age: 75 Year
  Sex: Female

DRUGS (3)
  1. INVANZ [Suspect]
     Indication: KLEBSIELLA INFECTION
     Dosage: UNK
  2. INVANZ [Suspect]
     Indication: URINARY TRACT INFECTION
  3. INVANZ [Suspect]
     Indication: ANTIBIOTIC LEVEL ABOVE THERAPEUTIC

REACTIONS (2)
  - Partial seizures [Unknown]
  - Grand mal convulsion [Unknown]
